FAERS Safety Report 25555314 (Version 1)
Quarter: 2025Q3

REPORT INFORMATION
  Report Type: Spontaneous
  Country: US (occurrence: None)
  Receive Date: 20250715
  Receipt Date: 20250715
  Transmission Date: 20251020
  Serious: Yes (Hospitalization)
  Sender: FDA-CTU
  Company Number: None

PATIENT
  Age: 66 Year
  Sex: Male
  Weight: 67.8 kg

DRUGS (2)
  1. ERBITUX [Suspect]
     Active Substance: CETUXIMAB
     Dates: start: 20250619, end: 20250707
  2. TAXOTERE [Suspect]
     Active Substance: DOCETAXEL

REACTIONS (3)
  - Abdominal pain [None]
  - Pneumoperitoneum [None]
  - Gastrostomy tube site complication [None]

NARRATIVE: CASE EVENT DATE: 20250708
